FAERS Safety Report 14367408 (Version 1)
Quarter: 2018Q1

REPORT INFORMATION
  Report Type: Spontaneous
  Country: US (occurrence: US)
  Receive Date: 20180109
  Receipt Date: 20180109
  Transmission Date: 20180509
  Serious: No
  Sender: FDA-Public Use
  Company Number: US-TARO-2017TAR01004

PATIENT
  Sex: Female
  Weight: 49.89 kg

DRUGS (8)
  1. PLETAL [Concomitant]
     Active Substance: CILOSTAZOL
  2. METRONIDAZOLE GEL USP, 1% [Suspect]
     Active Substance: METRONIDAZOLE
     Dosage: ^SMALLER THAN A DIME SIZE,^ 1X/DAY AT NIGHT
     Route: 061
     Dates: start: 20170829, end: 2017
  3. PLAVIX [Concomitant]
     Active Substance: CLOPIDOGREL BISULFATE
  4. PROTONIX [Concomitant]
     Active Substance: PANTOPRAZOLE SODIUM
  5. ESTROGEN PATCH [Concomitant]
     Active Substance: ESTRADIOL
     Dosage: UNK
     Route: 062
  6. AMLODIPINE [Concomitant]
     Active Substance: AMLODIPINE BESYLATE
  7. METRONIDAZOLE GEL USP, 1% [Suspect]
     Active Substance: METRONIDAZOLE
     Indication: ROSACEA
     Dosage: ^SMALLER THAN A DIME SIZE,^ 1X/DAY AT NIGHT
     Route: 061
     Dates: start: 2017
  8. ATENOLOL. [Concomitant]
     Active Substance: ATENOLOL

REACTIONS (2)
  - Dry skin [Not Recovered/Not Resolved]
  - Product quality issue [Not Recovered/Not Resolved]

NARRATIVE: CASE EVENT DATE: 2017
